FAERS Safety Report 17120435 (Version 2)
Quarter: 2020Q2

REPORT INFORMATION
  Report Type: Spontaneous
  Country: CA (occurrence: CA)
  Receive Date: 20191206
  Receipt Date: 20200625
  Transmission Date: 20200713
  Serious: Yes (Other)
  Sender: FDA-Public Use
  Company Number: CA-DRREDDYS-USA/CAN/19/0116882

PATIENT
  Age: 23 Year
  Sex: Male

DRUGS (1)
  1. ZOLEDRONIC ACID INJECTION 4MG/5ML [Suspect]
     Active Substance: ZOLEDRONIC ACID
     Indication: BONE CANCER METASTATIC
     Route: 065

REACTIONS (8)
  - Proteinuria [Not Recovered/Not Resolved]
  - Thrombocytopenia [Not Recovered/Not Resolved]
  - Hypoproteinaemia [Not Recovered/Not Resolved]
  - Chronic kidney disease [Not Recovered/Not Resolved]
  - Off label use [Not Recovered/Not Resolved]
  - Vomiting [Not Recovered/Not Resolved]
  - Microangiopathic haemolytic anaemia [Not Recovered/Not Resolved]
  - Hyperkalaemia [Not Recovered/Not Resolved]
